FAERS Safety Report 6936701-0 (Version None)
Quarter: 2010Q3

REPORT INFORMATION
  Report Type: 
  Country: None (occurrence: None)
  Receive Date: 20100823
  Receipt Date: 20100817
  Transmission Date: 20110219
  Serious: Yes (Other)
  Sender: FDA-Public Use
  Company Number: NL-PURDUE-GBR-2010-0006941

PATIENT
  Sex: Male

DRUGS (2)
  1. OXYNORM CAPSULES 10 MG [Suspect]
     Indication: BACK PAIN
     Dosage: 20 MG, BID
     Route: 048
     Dates: start: 20100801, end: 20100801
  2. OXYNORM CAPSULES 10 MG [Suspect]
     Dosage: 10 MG, BID
     Route: 048
     Dates: start: 20100801, end: 20100814

REACTIONS (3)
  - DIZZINESS [None]
  - SUICIDAL IDEATION [None]
  - VISUAL IMPAIRMENT [None]
